FAERS Safety Report 8452698-9 (Version None)
Quarter: 2012Q2

REPORT INFORMATION
  Report Type: 
  Country: None (occurrence: None)
  Receive Date: 20120620
  Receipt Date: 20120502
  Transmission Date: 20120825
  Serious: No
  Sender: FDA-Public Use
  Company Number: US-VERTEX PHARMACEUTICALS INC.-AE-2012-005850

PATIENT
  Age: 54 Year
  Sex: Female
  Weight: 100.79 kg

DRUGS (11)
  1. CELEXA [Concomitant]
     Route: 048
  2. LISINOPRIL AND HYDROCHLOROTHIAZIDE [Concomitant]
     Indication: BLOOD PRESSURE
     Route: 048
  3. ASCORBIC ACID [Concomitant]
     Route: 048
  4. RANITIDINE [Concomitant]
     Route: 048
  5. RIBAVIRIN [Concomitant]
     Indication: HEPATITIS C
     Dates: start: 20120316, end: 20120401
  6. PEGASYS [Concomitant]
     Indication: HEPATITIS C
     Route: 058
     Dates: start: 20120316, end: 20120406
  7. RIBAVIRIN [Concomitant]
     Route: 048
     Dates: start: 20120401
  8. PEGASYS [Concomitant]
     Route: 058
     Dates: start: 20120406
  9. STOOL SOFTENER [Concomitant]
     Route: 048
  10. INCIVEK [Suspect]
     Indication: HEPATITIS C
     Route: 048
     Dates: start: 20120316
  11. CALCIUM W/ VITAMIN D [Concomitant]
     Route: 048

REACTIONS (2)
  - HAEMORRHOIDAL HAEMORRHAGE [None]
  - WEIGHT DECREASED [None]
